FAERS Safety Report 5486655-1 (Version None)
Quarter: 2007Q3

REPORT INFORMATION
  Report Type: 
  Country: None (occurrence: None)
  Receive Date: 20070925
  Receipt Date: 20070730
  Transmission Date: 20080115
  Serious: No
  Sender: FDA-Public Use
  Company Number: 2007US001778

PATIENT
  Sex: Female

DRUGS (5)
  1. VESICARE [Suspect]
     Indication: HYPERTONIC BLADDER
     Dosage: 10 MG, UID/QD,ORAL
     Route: 048
     Dates: start: 20070529
  2. AVANDIA [Concomitant]
  3. ARIMIDEX [Concomitant]
  4. CELEBREX [Concomitant]
  5. UNIRETIC(MOEXIPRIL HYDROCHLORIDE) [Concomitant]

REACTIONS (1)
  - DRY MOUTH [None]
